FAERS Safety Report 5294665-2 (Version None)
Quarter: 2007Q2

REPORT INFORMATION
  Report Type: 
  Country: None (occurrence: None)
  Receive Date: 20070412
  Receipt Date: 20070330
  Transmission Date: 20071010
  Serious: Yes (Hospitalization)
  Sender: FDA-Public Use
  Company Number: FR-NOVOPROD-262406

PATIENT
  Age: 50 Year
  Sex: Female
  Weight: 68 kg

DRUGS (7)
  1. ACTIVELLE [Suspect]
     Indication: DRUG USE FOR UNKNOWN INDICATION
     Route: 048
     Dates: start: 20070112, end: 20070122
  2. OMEPRAZOLE [Suspect]
     Indication: DRUG USE FOR UNKNOWN INDICATION
     Dates: start: 20070103, end: 20070122
  3. SEROPLEX [Suspect]
     Indication: DRUG USE FOR UNKNOWN INDICATION
     Dates: start: 20070106, end: 20070122
  4. ZYPREXA [Suspect]
     Indication: DRUG USE FOR UNKNOWN INDICATION
     Dates: start: 20070104, end: 20070122
  5. ORELOX [Suspect]
     Indication: DRUG USE FOR UNKNOWN INDICATION
     Dates: start: 20070112, end: 20070122
  6. CLARADOL CAFFEINE [Suspect]
     Indication: DRUG USE FOR UNKNOWN INDICATION
     Dates: start: 20070112, end: 20070122
  7. FLUOXETINE [Concomitant]
     Indication: DRUG USE FOR UNKNOWN INDICATION
     Dates: start: 20061030

REACTIONS (1)
  - HEPATITIS [None]
